FAERS Safety Report 24257060 (Version 2)
Quarter: 2024Q3

REPORT INFORMATION
  Report Type: Spontaneous
  Country: JP (occurrence: None)
  Receive Date: 20240828
  Receipt Date: 20240830
  Transmission Date: 20241017
  Serious: Yes (Hospitalization, Other)
  Sender: ASTRAZENECA
  Company Number: 2024A191433

PATIENT
  Age: 50 Year
  Sex: Male

DRUGS (9)
  1. DAPAGLIFLOZIN [Suspect]
     Active Substance: DAPAGLIFLOZIN
     Indication: Cardiac failure chronic
     Route: 048
  2. ENALAPRIL [Suspect]
     Active Substance: ENALAPRIL
     Dosage: NUMBER OF SEPARATE DOSAGES UNKNOWN
     Dates: end: 20230731
  3. ENALAPRIL [Suspect]
     Active Substance: ENALAPRIL
     Dates: start: 20230801
  4. CARVEDILOL [Suspect]
     Active Substance: CARVEDILOL
     Dosage: NUMBER OF SEPARATE DOSAGES UNKNOWN
     Dates: end: 20231016
  5. CARVEDILOL [Suspect]
     Active Substance: CARVEDILOL
     Dosage: NUMBER OF SEPARATE DOSAGES UNKNOWN
     Dates: start: 20231017, end: 20231227
  6. CARVEDILOL [Suspect]
     Active Substance: CARVEDILOL
     Dates: start: 20231228
  7. SPIRONOLACTONE [Suspect]
     Active Substance: SPIRONOLACTONE
     Route: 065
  8. FUROSEMIDE [Suspect]
     Active Substance: FUROSEMIDE
     Dosage: NUMBER OF SEPARATE DOSAGES UNKNOWN
     Dates: end: 20240219
  9. FUROSEMIDE [Suspect]
     Active Substance: FUROSEMIDE
     Dates: start: 20240220

REACTIONS (4)
  - Gastrointestinal haemorrhage [Unknown]
  - Cardiac failure [Unknown]
  - N-terminal prohormone brain natriuretic peptide increased [Not Recovered/Not Resolved]
  - Blood creatinine increased [Not Recovered/Not Resolved]

NARRATIVE: CASE EVENT DATE: 20230620
